FAERS Safety Report 9227352 (Version 1)
Quarter: 2013Q2

REPORT INFORMATION
  Report Type: Spontaneous
  Country: US (occurrence: US)
  Receive Date: 20130412
  Receipt Date: 20130412
  Transmission Date: 20140414
  Serious: Yes (Other)
  Sender: FDA-Public Use
  Company Number: US-COVIDIEN/TYCO HEALTHCARE/MALLINCKRODT-T201301593

PATIENT
  Age: 100 Year
  Sex: Female

DRUGS (2)
  1. OPTIRAY [Suspect]
     Indication: COMPUTERISED TOMOGRAM
     Dosage: 100 ML, SINGLE; 2 ML/SEC
     Route: 042
     Dates: start: 20130403, end: 20130403
  2. SALINE                             /00075401/ [Concomitant]
     Indication: COMPUTERISED TOMOGRAM
     Dosage: UNK
     Route: 042
     Dates: start: 20130403, end: 20130403

REACTIONS (4)
  - Air embolism [Unknown]
  - Dyspnoea [Unknown]
  - Malaise [Unknown]
  - Drug administration error [Unknown]
